FAERS Safety Report 5035227-1 (Version None)
Quarter: 2006Q2

REPORT INFORMATION
  Report Type: 
  Country: None (occurrence: None)
  Receive Date: 20060522
  Receipt Date: 20060425
  Transmission Date: 20061013
  Serious: Yes (Other)
  Sender: FDA-Public Use
  Company Number: US-JNJFOC-20060401427

PATIENT
  Age: 41 Year
  Sex: Female
  Weight: 62.5964 kg

DRUGS (4)
  1. RISPERDAL CONSTA [Suspect]
     Indication: BIPOLAR DISORDER
     Dosage: 25 MG, 1 IN 2 WEEKS, INTRAMUSCULAR
     Route: 030
     Dates: start: 20050531
  2. LITHIUM (LITHIUM) [Concomitant]
  3. TOPAMAX [Concomitant]
  4. FLUOXETINE [Concomitant]

REACTIONS (1)
  - WEIGHT INCREASED [None]
